FAERS Safety Report 20190532 (Version 1)
Quarter: 2021Q4

REPORT INFORMATION
  Report Type: Spontaneous
  Country: DE (occurrence: DE)
  Receive Date: 20211215
  Receipt Date: 20211215
  Transmission Date: 20220303
  Serious: Yes (Hospitalization)
  Sender: FDA-Public Use
  Company Number: DE-SIN-2021-08-19-207

PATIENT
  Age: 38 Year
  Sex: Female

DRUGS (6)
  1. GABAPENTIN [Suspect]
     Active Substance: GABAPENTIN
     Indication: Product used for unknown indication
     Dosage: 1200 MILLIGRAM (GABAPENTIN 4X300MG)
     Route: 065
  2. LAMOTRIGINE [Suspect]
     Active Substance: LAMOTRIGINE
     Indication: Product used for unknown indication
     Dosage: 200 MILLIGRAM (LAMOTRIGINE 100MG 2X1)
     Route: 065
  3. TIZANIDINE [Suspect]
     Active Substance: TIZANIDINE
     Indication: Product used for unknown indication
     Dosage: 18 MILLIGRAM (TIZANIDINE 3X6MG)
     Route: 065
  4. BACLOFEN [Suspect]
     Active Substance: BACLOFEN
     Indication: Multiple sclerosis
     Dosage: 50 MILLIGRAM (BACLOFEN ORALLY 2X25MG)
     Route: 048
  5. BACLOFEN [Suspect]
     Active Substance: BACLOFEN
     Indication: Multiple sclerosis
     Dosage: 921 MICROGRAM(SYNCHROMED II PUMP FOR INTRATHECAL BACLOFEN)
     Route: 037
     Dates: start: 202102
  6. FLUOXETINE [Suspect]
     Active Substance: FLUOXETINE HYDROCHLORIDE
     Indication: Product used for unknown indication
     Dosage: UNK (FLUOXETINE 1X40MG)
     Route: 065

REACTIONS (22)
  - Hypoacusis [Unknown]
  - Confusional state [Recovering/Resolving]
  - Chills [Unknown]
  - Skin burning sensation [Unknown]
  - Memory impairment [Unknown]
  - Night sweats [Unknown]
  - Vision blurred [Not Recovered/Not Resolved]
  - Dysgeusia [Unknown]
  - Sleep disorder [Recovering/Resolving]
  - Dysuria [Unknown]
  - Tinnitus [Unknown]
  - Gastrointestinal motility disorder [Unknown]
  - Somnolence [Recovering/Resolving]
  - Asthenia [Recovering/Resolving]
  - Erythema [Unknown]
  - Disturbance in attention [Recovering/Resolving]
  - Fatigue [Unknown]
  - Dysphagia [Recovering/Resolving]
  - Dyspnoea [Unknown]
  - Pain in extremity [Recovering/Resolving]
  - Overdose [Unknown]
  - Drug ineffective [Unknown]
